FAERS Safety Report 20637244 (Version 6)
Quarter: 2023Q2

REPORT INFORMATION
  Report Type: Report from Study
  Country: DE (occurrence: DE)
  Receive Date: 20220325
  Receipt Date: 20230609
  Transmission Date: 20230722
  Serious: Yes (Hospitalization, Other)
  Sender: FDA-Public Use
  Company Number: DE-TAKEDA-2022TUS019860

PATIENT
  Age: 3 Year
  Sex: Male

DRUGS (22)
  1. TEDUGLUTIDE [Suspect]
     Active Substance: TEDUGLUTIDE
     Indication: Short-bowel syndrome
     Dosage: 0.35 MILLIGRAM, QD
     Route: 042
     Dates: start: 20200414, end: 20200920
  2. TEDUGLUTIDE [Suspect]
     Active Substance: TEDUGLUTIDE
     Indication: Short-bowel syndrome
     Dosage: 0.35 MILLIGRAM, QD
     Route: 042
     Dates: start: 20200414, end: 20200920
  3. TEDUGLUTIDE [Suspect]
     Active Substance: TEDUGLUTIDE
     Indication: Short-bowel syndrome
     Dosage: 0.35 MILLIGRAM, QD
     Route: 042
     Dates: start: 20200414, end: 20200920
  4. TEDUGLUTIDE [Suspect]
     Active Substance: TEDUGLUTIDE
     Indication: Short-bowel syndrome
     Dosage: 0.35 MILLIGRAM, QD
     Route: 042
     Dates: start: 20200414, end: 20200920
  5. TEDUGLUTIDE [Suspect]
     Active Substance: TEDUGLUTIDE
     Dosage: 0.45 MILLIGRAM, QD
     Route: 042
     Dates: start: 20200921, end: 20201213
  6. TEDUGLUTIDE [Suspect]
     Active Substance: TEDUGLUTIDE
     Dosage: 0.45 MILLIGRAM, QD
     Route: 042
     Dates: start: 20200921, end: 20201213
  7. TEDUGLUTIDE [Suspect]
     Active Substance: TEDUGLUTIDE
     Dosage: 0.45 MILLIGRAM, QD
     Route: 042
     Dates: start: 20200921, end: 20201213
  8. TEDUGLUTIDE [Suspect]
     Active Substance: TEDUGLUTIDE
     Dosage: 0.45 MILLIGRAM, QD
     Route: 042
     Dates: start: 20200921, end: 20201213
  9. TEDUGLUTIDE [Suspect]
     Active Substance: TEDUGLUTIDE
     Dosage: 0.55 MILLIGRAM, QD
     Route: 042
     Dates: start: 20201214, end: 202202
  10. TEDUGLUTIDE [Suspect]
     Active Substance: TEDUGLUTIDE
     Dosage: 0.55 MILLIGRAM, QD
     Route: 042
     Dates: start: 20201214, end: 202202
  11. TEDUGLUTIDE [Suspect]
     Active Substance: TEDUGLUTIDE
     Dosage: 0.55 MILLIGRAM, QD
     Route: 042
     Dates: start: 20201214, end: 202202
  12. TEDUGLUTIDE [Suspect]
     Active Substance: TEDUGLUTIDE
     Dosage: 0.55 MILLIGRAM, QD
     Route: 042
     Dates: start: 20201214, end: 202202
  13. TEDUGLUTIDE [Suspect]
     Active Substance: TEDUGLUTIDE
     Dosage: 0.55 MILLIGRAM, QD
     Route: 042
     Dates: start: 202202, end: 20220325
  14. TEDUGLUTIDE [Suspect]
     Active Substance: TEDUGLUTIDE
     Dosage: 0.55 MILLIGRAM, QD
     Route: 042
     Dates: start: 202202, end: 20220325
  15. TEDUGLUTIDE [Suspect]
     Active Substance: TEDUGLUTIDE
     Dosage: 0.55 MILLIGRAM, QD
     Route: 042
     Dates: start: 202202, end: 20220325
  16. TEDUGLUTIDE [Suspect]
     Active Substance: TEDUGLUTIDE
     Dosage: 0.55 MILLIGRAM, QD
     Route: 042
     Dates: start: 202202, end: 20220325
  17. VITAMIN D [Concomitant]
     Active Substance: VITAMIN D NOS
     Indication: Vitamin D deficiency
     Dosage: 500 INTERNATIONAL UNIT, QD
     Route: 048
     Dates: start: 20211018
  18. VITAMIN B12 [Concomitant]
     Active Substance: CYANOCOBALAMIN
     Indication: Vitamin B12 deficiency
     Dosage: 1000 MICROGRAM, QD
     Route: 047
     Dates: start: 20211018
  19. VITAMIN B12 [Concomitant]
     Active Substance: CYANOCOBALAMIN
     Dosage: 1250 MICROGRAM, QD
     Route: 048
     Dates: start: 20210628
  20. OMEPRAZOLE [Concomitant]
     Active Substance: OMEPRAZOLE
     Indication: Oesophagitis
     Dosage: 10 MILLIGRAM, BID
     Route: 065
     Dates: start: 20220302, end: 20220409
  21. OMEPRAZOLE [Concomitant]
     Active Substance: OMEPRAZOLE
     Dosage: 10 MILLIGRAM, QD
     Route: 065
     Dates: start: 20220410, end: 20220508
  22. NEXIUM [Concomitant]
     Active Substance: ESOMEPRAZOLE MAGNESIUM
     Indication: Oesophagitis
     Dosage: 10 MILLIGRAM, BID
     Route: 048
     Dates: start: 20220628, end: 20220712

REACTIONS (1)
  - Subileus [Recovered/Resolved]

NARRATIVE: CASE EVENT DATE: 20220316
